FAERS Safety Report 11858767 (Version 5)
Quarter: 2018Q3

REPORT INFORMATION
  Report Type: Spontaneous
  Country: GB (occurrence: GB)
  Receive Date: 20151222
  Receipt Date: 20180818
  Transmission Date: 20181010
  Serious: Yes (Death, Congenital Anomaly, Other)
  Sender: FDA-Public Use
  Company Number: GB-AUROBINDO-AUR-APL-2015-11588

PATIENT
  Sex: Female
  Weight: .26 kg

DRUGS (18)
  1. MIRTAZAPINE 30MG [Suspect]
     Active Substance: MIRTAZAPINE
     Dosage: 1 DOSAGE FORM, ONCE A DAY
     Route: 064
     Dates: start: 201407, end: 20141201
  2. DARUNAVIR [Suspect]
     Active Substance: DARUNAVIR
     Dosage: 800 MILLIGRAM
     Route: 064
     Dates: start: 20120401
  3. NORVIR [Suspect]
     Active Substance: RITONAVIR
     Indication: HIV INFECTION
     Dosage: DOSAGE FORM: UNSPECIFIED, MOTHER DOSING
     Route: 064
     Dates: start: 200801
  4. NORVIR [Suspect]
     Active Substance: RITONAVIR
     Dosage: 100 MILLIGRAM
     Route: 064
     Dates: start: 201407, end: 20141201
  5. TRUVADA [Suspect]
     Active Substance: EMTRICITABINE\TENOFOVIR DISOPROXIL FUMARATE
     Dosage: (1)
     Route: 064
     Dates: start: 20080117
  6. DARUNAVIR [Suspect]
     Active Substance: DARUNAVIR
     Indication: HIV INFECTION
     Dosage: 800 MG, ONCE A DAY
     Route: 064
     Dates: start: 201204
  7. NORVIR [Suspect]
     Active Substance: RITONAVIR
     Dosage: 100 MILLIGRAM
     Route: 064
     Dates: start: 20080117
  8. KALETRA [Suspect]
     Active Substance: LOPINAVIR\RITONAVIR
     Indication: HIV INFECTION
     Dosage: UNK
     Route: 064
     Dates: start: 200809, end: 201204
  9. VALACICLOVIR [Suspect]
     Active Substance: VALACYCLOVIR HYDROCHLORIDE
     Dosage: DOSAGE FORM: UNSPECIFIED, MOTHER DOSING
     Route: 064
     Dates: start: 20140918, end: 20141201
  10. RITONAVIR. [Suspect]
     Active Substance: RITONAVIR
     Indication: HIV INFECTION
     Dosage: 100 MG, QD
     Route: 064
     Dates: start: 201407, end: 20141201
  11. TRUVADA [Suspect]
     Active Substance: EMTRICITABINE\TENOFOVIR DISOPROXIL FUMARATE
     Dosage: (1)
     Route: 064
     Dates: start: 201407, end: 20141201
  12. VALACICLOVIR [Suspect]
     Active Substance: VALACYCLOVIR HYDROCHLORIDE
     Indication: HERPES VIRUS INFECTION
     Dosage: DOSAGE FORM: UNSPECIFIED, MOTHER DOSING
     Route: 064
     Dates: start: 20140918, end: 20140922
  13. MIRTAZAPINE 30MG [Suspect]
     Active Substance: MIRTAZAPINE
     Indication: DEPRESSION
     Dosage: 30 MG, ONCE A DAY
     Route: 064
     Dates: start: 201406, end: 20141201
  14. CYCLIZINE [Suspect]
     Active Substance: CYCLIZINE
     Indication: VOMITING
     Dosage: DOSAGE FORM: UNSPECIFIED, MOTHER DOSING
     Route: 064
     Dates: start: 20140901, end: 20141030
  15. DARUNAVIR [Suspect]
     Active Substance: DARUNAVIR
     Dosage: 800 MG, QD
     Route: 064
     Dates: start: 201407, end: 20141201
  16. KALETRA [Suspect]
     Active Substance: LOPINAVIR\RITONAVIR
     Indication: MATERNAL EXPOSURE TIMING UNSPECIFIED
     Dosage: UNK
     Route: 064
  17. NORVIR [Suspect]
     Active Substance: RITONAVIR
     Dosage: 4 DOSAGE FORM
     Route: 064
     Dates: start: 201204
  18. TRUVADA [Suspect]
     Active Substance: EMTRICITABINE\TENOFOVIR DISOPROXIL FUMARATE
     Indication: HIV INFECTION
     Dosage: DOSAGE FORM: UNSPECIFIED, MOTHER DOSING
     Route: 064
     Dates: start: 200801

REACTIONS (5)
  - Spina bifida [Fatal]
  - Skull malformation [Fatal]
  - Foetal death [Fatal]
  - Foetal exposure during pregnancy [Recovered/Resolved]
  - Cerebral ventricle dilatation [Fatal]

NARRATIVE: CASE EVENT DATE: 20141126
